FAERS Safety Report 10904355 (Version 1)
Quarter: 2015Q1

REPORT INFORMATION
  Report Type: Spontaneous
  Country: US (occurrence: None)
  Receive Date: 20150304
  Receipt Date: 20150304
  Transmission Date: 20150721
  Serious: No
  Sender: FDA-Public Use
  Company Number: None

PATIENT
  Age: 56 Year
  Sex: Female

DRUGS (17)
  1. AMPYRA [Suspect]
     Active Substance: DALFAMPRIDINE
     Indication: MULTIPLE SCLEROSIS
     Route: 048
     Dates: start: 201007, end: 201306
  2. CLONAZEPAM. [Concomitant]
     Active Substance: CLONAZEPAM
  3. KEFLEX [Concomitant]
     Active Substance: CEPHALEXIN
  4. AMPYRA [Concomitant]
     Active Substance: DALFAMPRIDINE
  5. MORPHINE [Concomitant]
     Active Substance: MORPHINE
  6. CIPRO [Concomitant]
     Active Substance: CIPROFLOXACIN HYDROCHLORIDE
  7. DETROL [Concomitant]
     Active Substance: TOLTERODINE TARTRATE
  8. PROAIR HFA [Concomitant]
     Active Substance: ALBUTEROL SULFATE
  9. PERCOCAT [Concomitant]
  10. QUETIAPINE [Concomitant]
     Active Substance: QUETIAPINE
  11. SEPTRA DS [Concomitant]
     Active Substance: SULFAMETHOXAZOLE\TRIMETHOPRIM
  12. PROZAC [Concomitant]
     Active Substance: FLUOXETINE HYDROCHLORIDE
  13. EXTAVIA [Concomitant]
     Active Substance: INTERFERON BETA-1B
  14. TIZANIDINE (TIZANIDINE) [Concomitant]
     Active Substance: TIZANIDINE
  15. MODAFINIL. [Concomitant]
     Active Substance: MODAFINIL
  16. PRAVASTATIN [Concomitant]
     Active Substance: PRAVASTATIN\PRAVASTATIN SODIUM
  17. RIZATRIPTAN [Concomitant]
     Active Substance: RIZATRIPTAN

REACTIONS (1)
  - Urinary tract infection [None]

NARRATIVE: CASE EVENT DATE: 20140425
